FAERS Safety Report 24603264 (Version 1)
Quarter: 2024Q4

REPORT INFORMATION
  Report Type: Spontaneous
  Country: US (occurrence: US)
  Receive Date: 20241111
  Receipt Date: 20241111
  Transmission Date: 20250115
  Serious: No
  Sender: BAUSCH AND LOMB
  Company Number: US-BAUSCH-BL-2024-016375

PATIENT
  Age: 66 Year
  Sex: Female

DRUGS (3)
  1. XIFAXAN [Suspect]
     Active Substance: RIFAXIMIN
     Indication: Irritable bowel syndrome
     Dosage: FIRST COURSE
     Route: 048
     Dates: start: 202403, end: 202403
  2. XIFAXAN [Suspect]
     Active Substance: RIFAXIMIN
     Indication: Gastrointestinal microorganism overgrowth
     Dosage: SECOND COURSE
     Route: 048
     Dates: start: 202403, end: 202403
  3. XIFAXAN [Suspect]
     Active Substance: RIFAXIMIN
     Dosage: THIRD COURSE
     Route: 048
     Dates: start: 202408, end: 202408

REACTIONS (5)
  - Irritable bowel syndrome [Not Recovered/Not Resolved]
  - Gastrointestinal microorganism overgrowth [Not Recovered/Not Resolved]
  - Symptom recurrence [Not Recovered/Not Resolved]
  - Asthenia [Unknown]
  - Fatigue [Unknown]

NARRATIVE: CASE EVENT DATE: 20240101
